FAERS Safety Report 7537401-9 (Version None)
Quarter: 2011Q2

REPORT INFORMATION
  Report Type: 
  Country: None (occurrence: None)
  Receive Date: 20110609
  Receipt Date: 20110526
  Transmission Date: 20111010
  Serious: Yes (Other)
  Sender: FDA-Public Use
  Company Number: US-JNJFOC-20110201029

PATIENT
  Sex: Male
  Weight: 66.68 kg

DRUGS (5)
  1. REMICADE [Suspect]
     Indication: CROHN'S DISEASE
     Route: 042
     Dates: start: 20100901
  2. CALCIUM CARBONATE [Concomitant]
     Indication: MEDICAL DIET
     Route: 048
     Dates: start: 20101101
  3. MULTIVIT [Concomitant]
     Route: 048
     Dates: start: 20100901
  4. METHOTREXATE [Suspect]
     Indication: CROHN'S DISEASE
     Dates: start: 20100901, end: 20101201
  5. PREDNISONE [Suspect]
     Indication: CROHN'S DISEASE
     Dates: start: 20100101, end: 20101201

REACTIONS (5)
  - ABNORMAL LOSS OF WEIGHT [None]
  - HEPATIC ENZYME INCREASED [None]
  - WEIGHT INCREASED [None]
  - INCREASED APPETITE [None]
  - ENTERITIS [None]
